FAERS Safety Report 7070851-6 (Version None)
Quarter: 2010Q4

REPORT INFORMATION
  Report Type: 
  Country: None (occurrence: None)
  Receive Date: 20101027
  Receipt Date: 20101027
  Transmission Date: 20110411
  Serious: Yes (Death, Life-Threatening, Hospitalization, Disabling, Congenital Anomaly, Other)
  Sender: FDA-Public Use
  Company Number: None

PATIENT
  Age: 34 Year
  Sex: Female
  Weight: 81.6475 kg

DRUGS (1)
  1. BUPROPION 150 MG DON'T KNOW [Suspect]
     Indication: FATIGUE
     Dosage: 1 PILL DAILY PO
     Route: 048
     Dates: start: 20100918, end: 20100927

REACTIONS (2)
  - DRUG INEFFECTIVE [None]
  - URTICARIA [None]
